FAERS Safety Report 11218199 (Version 1)
Quarter: 2015Q2

REPORT INFORMATION
  Report Type: Spontaneous
  Country: CH (occurrence: CH)
  Receive Date: 20150625
  Receipt Date: 20150625
  Transmission Date: 20150821
  Serious: Yes (Other)
  Sender: FDA-Public Use
  Company Number: CH-LPDUSPRD-20150469

PATIENT
  Age: 26 Year
  Sex: Female

DRUGS (3)
  1. VIDE [Concomitant]
     Dosage: 3 DROPS (10 ML IN 1 MONTH)
     Route: 048
  2. FERINJECT [Suspect]
     Active Substance: FERRIC CARBOXYMALTOSE
     Dosage: 500MG/100 ML NACL
     Route: 040
     Dates: start: 20150326, end: 20150326
  3. TARDYFERON [Concomitant]
     Active Substance: FERROUS SULFATE\FOLIC ACID
     Dosage: DOSE NOT PROVIDED
     Route: 048
     Dates: start: 20150304, end: 20150323

REACTIONS (3)
  - Infusion site pain [Unknown]
  - Myalgia [Unknown]
  - Infusion site discolouration [Unknown]

NARRATIVE: CASE EVENT DATE: 20150326
